FAERS Safety Report 22255771 (Version 2)
Quarter: 2024Q3

REPORT INFORMATION
  Report Type: Spontaneous
  Country: HU (occurrence: HU)
  Receive Date: 20230426
  Receipt Date: 20240927
  Transmission Date: 20241017
  Serious: Yes (Life-Threatening)
  Sender: NOVARTIS
  Company Number: HU-002147023-NVSC2023HU094437

PATIENT
  Sex: Male
  Weight: 150 kg

DRUGS (9)
  1. ELTROMBOPAG OLAMINE [Suspect]
     Active Substance: ELTROMBOPAG OLAMINE
     Indication: Immune thrombocytopenia
     Dosage: 50 MG, QD
     Route: 065
     Dates: start: 201706
  2. ELTROMBOPAG OLAMINE [Suspect]
     Active Substance: ELTROMBOPAG OLAMINE
     Dosage: UNK (100 MG -75 MG) (ALTERNATING)
     Route: 065
  3. ELTROMBOPAG OLAMINE [Suspect]
     Active Substance: ELTROMBOPAG OLAMINE
     Dosage: 100 MG, QD
     Route: 065
     Dates: start: 202007
  4. ELTROMBOPAG OLAMINE [Suspect]
     Active Substance: ELTROMBOPAG OLAMINE
     Dosage: UNK (100 MG -75 MG) (ALTERNATING)
     Route: 065
     Dates: start: 202009, end: 202103
  5. AZATHIOPRINE [Concomitant]
     Active Substance: AZATHIOPRINE
     Indication: Immune thrombocytopenia
     Dosage: UNK
     Route: 065
     Dates: start: 2016
  6. AZATHIOPRINE [Concomitant]
     Active Substance: AZATHIOPRINE
     Dosage: UNK
     Route: 065
  7. AZATHIOPRINE [Concomitant]
     Active Substance: AZATHIOPRINE
     Dosage: UNK
     Route: 065
  8. MEDROL [Concomitant]
     Active Substance: METHYLPREDNISOLONE
     Indication: Immune thrombocytopenia
     Dosage: 100 MG
     Route: 065
  9. IMURAN [Concomitant]
     Active Substance: AZATHIOPRINE
     Indication: Immune thrombocytopenia
     Dosage: 100 MG, QD
     Route: 065

REACTIONS (5)
  - Platelet count decreased [Recovered/Resolved]
  - Platelet count increased [Recovering/Resolving]
  - Platelet count abnormal [Recovered/Resolved]
  - Off label use [Unknown]
  - Overdose [Unknown]

NARRATIVE: CASE EVENT DATE: 20190901
